FAERS Safety Report 11124764 (Version 1)
Quarter: 2015Q2

REPORT INFORMATION
  Report Type: Spontaneous
  Country: DE (occurrence: DE)
  Receive Date: 20150520
  Receipt Date: 20150520
  Transmission Date: 20150821
  Serious: Yes (Other)
  Sender: FDA-Public Use
  Company Number: DE-CIPLA LTD.-2015DE04000

PATIENT

DRUGS (7)
  1. IRINOTECAN [Suspect]
     Active Substance: IRINOTECAN
     Dosage: 180 MG/M 2
     Route: 013
  2. IRINOTECAN [Suspect]
     Active Substance: IRINOTECAN
     Dosage: 260 MG/M 2
     Route: 013
  3. IRINOTECAN [Suspect]
     Active Substance: IRINOTECAN
     Dosage: 240 MG/M 2
     Route: 013
  4. IRINOTECAN [Suspect]
     Active Substance: IRINOTECAN
     Dosage: 200 MG/M 2
     Route: 013
  5. IRINOTECAN [Suspect]
     Active Substance: IRINOTECAN
     Indication: COLORECTAL CANCER METASTATIC
     Dosage: 140 MG/M 2
     Route: 013
  6. IRINOTECAN [Suspect]
     Active Substance: IRINOTECAN
     Dosage: 160 MG/M 2
     Route: 013
  7. IRINOTECAN [Suspect]
     Active Substance: IRINOTECAN
     Dosage: 220 MG/M 2
     Route: 013

REACTIONS (1)
  - Neurotoxicity [Unknown]
